FAERS Safety Report 8555187-6 (Version None)
Quarter: 2012Q3

REPORT INFORMATION
  Report Type: 
  Country: None (occurrence: None)
  Receive Date: 20120731
  Receipt Date: 20120724
  Transmission Date: 20120928
  Serious: No
  Sender: FDA-Public Use
  Company Number: US-B.I. PHARMACEUTICALS,INC./RIDGEFIELD-2012-BP-16432BP

PATIENT
  Age: 76 Year
  Sex: Female

DRUGS (2)
  1. ZANTAC [Suspect]
     Indication: DYSPEPSIA
     Route: 048
     Dates: end: 20120724
  2. ZANTAC [Suspect]

REACTIONS (5)
  - CHILLS [None]
  - VOMITING [None]
  - DRUG INEFFECTIVE [None]
  - NAUSEA [None]
  - ACCIDENTAL OVERDOSE [None]
